FAERS Safety Report 18955411 (Version 1)
Quarter: 2021Q1

REPORT INFORMATION
  Report Type: Spontaneous
  Country: FR (occurrence: FR)
  Receive Date: 20210301
  Receipt Date: 20210301
  Transmission Date: 20210420
  Serious: Yes (Disabling)
  Sender: FDA-Public Use
  Company Number: FR-TEVA-2021-FR-1884389

PATIENT
  Age: 75 Year
  Sex: Female
  Weight: 77 kg

DRUGS (8)
  1. UVEDOSE 100 000 UI, SOLUTION BUVABLE EN AMPOULE [Suspect]
     Active Substance: CHOLECALCIFEROL
     Indication: VITAMIN SUPPLEMENTATION
     Dosage: 1DF
     Route: 048
     Dates: start: 20200611
  2. VENLAFAXINE [Suspect]
     Active Substance: VENLAFAXINE HYDROCHLORIDE
     Indication: PAIN
     Dosage: 75MG
     Route: 048
  3. DICODIN L.P. 60 MG, COMPRIME A LIBERATION PROLONGEE [Suspect]
     Active Substance: DIHYDROCODEINE
     Indication: PAIN
     Dosage: 120MG
     Route: 048
     Dates: start: 20200610
  4. LEVOTHYROX 125 MICROGRAMMES, COMPRIME SECABLE [Suspect]
     Active Substance: LEVOTHYROXINE SODIUM
     Indication: HYPOTHYROIDISM
     Dosage: 125MCG,
     Route: 048
     Dates: start: 2013
  5. DOLIPRANE [Suspect]
     Active Substance: ACETAMINOPHEN
     Indication: PAIN
     Route: 048
  6. ACLASTA [Suspect]
     Active Substance: ZOLEDRONIC ACID
     Indication: OSTEOPOROSIS
     Dosage: 1DF
     Route: 042
     Dates: start: 201403, end: 201503
  7. URBANYL 10 MG, COMPRIME SECABLE [Suspect]
     Active Substance: CLOBAZAM
     Indication: PAIN
     Dosage: 20MG,
     Route: 048
     Dates: start: 20200610
  8. GABAPENTINE [Suspect]
     Active Substance: GABAPENTIN
     Indication: PAIN
     Dosage: 1200MG
     Route: 048
     Dates: start: 201703

REACTIONS (6)
  - Dry mouth [Not Recovered/Not Resolved]
  - Tooth fracture [Recovered/Resolved with Sequelae]
  - Constipation [Recovering/Resolving]
  - Dry eye [Not Recovered/Not Resolved]
  - Gingival recession [Recovered/Resolved with Sequelae]
  - Periodontitis [Not Recovered/Not Resolved]

NARRATIVE: CASE EVENT DATE: 202007
